FAERS Safety Report 8243712-4 (Version None)
Quarter: 2012Q1

REPORT INFORMATION
  Report Type: 
  Country: None (occurrence: None)
  Receive Date: 20120329
  Receipt Date: 20110425
  Transmission Date: 20120608
  Serious: No
  Sender: FDA-Public Use
  Company Number: US-MYLANLABS-2011S1004777

PATIENT
  Age: 31 Year
  Sex: Female

DRUGS (2)
  1. EMSAM [Suspect]
     Indication: MAJOR DEPRESSION
     Dosage: CHANGED Q24H
     Route: 062
  2. BENADRYL [Concomitant]
     Indication: MULTIPLE ALLERGIES

REACTIONS (1)
  - URINE AMPHETAMINE POSITIVE [None]
